FAERS Safety Report 6235240-2 (Version None)
Quarter: 2009Q2

REPORT INFORMATION
  Report Type: 
  Country: None (occurrence: None)
  Receive Date: 20090618
  Receipt Date: 20090616
  Transmission Date: 20091009
  Serious: Yes (Life-Threatening)
  Sender: FDA-Public Use
  Company Number: JP-SANOFI-SYNTHELABO-A01200905776

PATIENT
  Sex: Male
  Weight: 65 kg

DRUGS (7)
  1. LIVALO [Concomitant]
     Indication: HYPERLIPIDAEMIA
     Route: 048
     Dates: start: 20090206, end: 20090414
  2. PERINDOPRIL ERBUMINE [Concomitant]
     Indication: HYPERTENSION
     Route: 048
     Dates: start: 20090206, end: 20090414
  3. OMEPRAL [Concomitant]
     Indication: PROPHYLAXIS
     Route: 048
     Dates: start: 20090205, end: 20090414
  4. ASPIRIN [Concomitant]
     Indication: ACUTE MYOCARDIAL INFARCTION
     Route: 048
     Dates: start: 20090205
  5. PLAVIX [Suspect]
     Indication: PERCUTANEOUS CORONARY INTERVENTION
     Dosage: 300 MG ONCE FOLLOWED BY 75 MG
     Route: 048
     Dates: start: 20090205, end: 20090421
  6. PLAVIX [Suspect]
     Indication: STENT PLACEMENT
     Dosage: 300 MG ONCE FOLLOWED BY 75 MG
     Route: 048
     Dates: start: 20090205, end: 20090421
  7. PLAVIX [Suspect]
     Indication: ACUTE MYOCARDIAL INFARCTION
     Dosage: 300 MG ONCE FOLLOWED BY 75 MG
     Route: 048
     Dates: start: 20090205, end: 20090421

REACTIONS (3)
  - DRUG INEFFECTIVE [None]
  - HEPATIC FUNCTION ABNORMAL [None]
  - THROMBOSIS IN DEVICE [None]
